FAERS Safety Report 19154186 (Version 5)
Quarter: 2021Q3

REPORT INFORMATION
  Report Type: Spontaneous
  Country: CN (occurrence: CN)
  Receive Date: 20210419
  Receipt Date: 20210927
  Transmission Date: 20211014
  Serious: Yes (Hospitalization)
  Sender: FDA-Public Use
  Company Number: CN-CELGENEUS-CHN-20210402589

PATIENT
  Age: 45 Year
  Sex: Male
  Weight: 81 kg

DRUGS (20)
  1. ABRAXANE [Suspect]
     Active Substance: PACLITAXEL
     Dosage: 100 MILLIGRAM/SQ. METER
     Route: 041
     Dates: start: 20200706, end: 20200706
  2. RECOMBINANT HUMAN GRANULOCYTE COLONY?STIMULATING FACTOR [Concomitant]
     Active Substance: GRANULOCYTE COLONY-STIMULATING FACTOR NOS
     Indication: WHITE BLOOD CELL COUNT INCREASED
     Route: 065
     Dates: start: 20200118, end: 20200119
  3. ABRAXANE [Suspect]
     Active Substance: PACLITAXEL
     Dosage: 100 MILLIGRAM/SQ. METER
     Route: 041
     Dates: start: 20191225
  4. ABRAXANE [Suspect]
     Active Substance: PACLITAXEL
     Dosage: 100 MILLIGRAM/SQ. METER
     Route: 041
     Dates: start: 20200117
  5. DEXAMETHASONE SODIUM PHOSPHATE. [Concomitant]
     Active Substance: DEXAMETHASONE SODIUM PHOSPHATE
     Indication: ANTIEMETIC SUPPORTIVE CARE
     Route: 065
     Dates: start: 20200122, end: 20200122
  6. TROPISETRON [Concomitant]
     Active Substance: TROPISETRON
     Indication: ANTIEMETIC SUPPORTIVE CARE
     Route: 065
     Dates: start: 20200122, end: 20200122
  7. ABRAXANE [Suspect]
     Active Substance: PACLITAXEL
     Dosage: 100 MILLIGRAM/SQ. METER
     Route: 041
     Dates: start: 20200514, end: 20200523
  8. CARBOPLATIN. [Suspect]
     Active Substance: CARBOPLATIN
     Indication: NON-SMALL CELL LUNG CANCER
     Route: 041
     Dates: start: 20191218, end: 20200615
  9. CARBOPLATIN. [Suspect]
     Active Substance: CARBOPLATIN
     Route: 041
     Dates: start: 20200615, end: 20200615
  10. SERPLULIMAB. [Suspect]
     Active Substance: SERPLULIMAB
     Indication: NON-SMALL CELL LUNG CANCER
     Dosage: 4.5 MILLIGRAM/KILOGRAM
     Route: 041
     Dates: start: 20191218, end: 20200110
  11. ABRAXANE [Suspect]
     Active Substance: PACLITAXEL
     Dosage: 100 MILLIGRAM/SQ. METER
     Route: 041
     Dates: start: 20200102
  12. CARBOPLATIN. [Suspect]
     Active Substance: CARBOPLATIN
     Route: 041
     Dates: start: 20200110
  13. SERPLULIMAB. [Suspect]
     Active Substance: SERPLULIMAB
     Dosage: 4.5 MILLIGRAM/KILOGRAM
     Route: 041
     Dates: start: 20200615, end: 20200615
  14. COENZYME Q10 [Concomitant]
     Active Substance: DIETARY SUPPLEMENT\UBIDECARENONE
     Indication: CARDIOTOXICITY
     Route: 065
     Dates: start: 20200424, end: 20201229
  15. ABRAXANE [Suspect]
     Active Substance: PACLITAXEL
     Dosage: 100 MILLIGRAM/SQ. METER
     Route: 041
     Dates: start: 20200615, end: 20200622
  16. SERPLULIMAB. [Suspect]
     Active Substance: SERPLULIMAB
     Dosage: 4.5 MILLIGRAM/KILOGRAM
     Route: 041
     Dates: start: 20200514, end: 20200514
  17. ABRAXANE [Suspect]
     Active Substance: PACLITAXEL
     Indication: NON-SMALL CELL LUNG CANCER
     Dosage: 100 MILLIGRAM/SQ. METER
     Route: 041
     Dates: start: 20191218, end: 20200706
  18. DIYUSHENGBAI [Concomitant]
     Indication: LEUKOPENIA
     Route: 065
     Dates: start: 20200122, end: 20200128
  19. CARBOPLATIN. [Suspect]
     Active Substance: CARBOPLATIN
     Route: 041
     Dates: start: 20200514, end: 20200514
  20. RECOMBINANT HUMAN GRANULOCYTE COLONY?STIMULATING FACTOR [Concomitant]
     Active Substance: GRANULOCYTE COLONY-STIMULATING FACTOR NOS
     Route: 065
     Dates: start: 20200122, end: 20200122

REACTIONS (2)
  - Aspartate aminotransferase increased [Recovered/Resolved]
  - Alanine aminotransferase increased [Recovered/Resolved]

NARRATIVE: CASE EVENT DATE: 20200629
